FAERS Safety Report 7947097-X (Version None)
Quarter: 2011Q4

REPORT INFORMATION
  Report Type: 
  Country: None (occurrence: None)
  Receive Date: 20111129
  Receipt Date: 20111119
  Transmission Date: 20120403
  Serious: Yes (Hospitalization)
  Sender: FDA-Public Use
  Company Number: BR-ASTRAZENECA-2011SE68101

PATIENT
  Age: 79 Year
  Sex: Female
  Weight: 83 kg

DRUGS (8)
  1. CRESTOR [Suspect]
     Indication: BLOOD CHOLESTEROL INCREASED
     Route: 048
     Dates: start: 20111101
  2. CRESTOR [Suspect]
     Route: 048
  3. LOSARTAN POTASSIUM [Suspect]
     Indication: HYPERTENSION
     Route: 048
     Dates: start: 20010101, end: 20111101
  4. MODURETIC 5-50 [Suspect]
     Indication: HYPERTENSION
     Route: 048
     Dates: start: 20010101, end: 20111101
  5. FOLIC ACID [Concomitant]
     Route: 048
  6. CRESTOR [Suspect]
     Route: 048
  7. METFORMIN HYDROCHLORIDE [Suspect]
     Indication: DIABETES MELLITUS
     Route: 048
     Dates: start: 20090101, end: 20111001
  8. SYNTHROID [Concomitant]
     Route: 048
     Dates: start: 20060101

REACTIONS (4)
  - DIARRHOEA [None]
  - HYPERTENSION [None]
  - CHEST PAIN [None]
  - BLOOD PRESSURE INCREASED [None]
